FAERS Safety Report 6989233-8 (Version None)
Quarter: 2010Q3

REPORT INFORMATION
  Report Type: 
  Country: None (occurrence: None)
  Receive Date: 20100916
  Receipt Date: 20091020
  Transmission Date: 20110219
  Serious: Yes (Hospitalization)
  Sender: FDA-Public Use
  Company Number: GB-PFIZER INC-2009286243

PATIENT
  Age: 68 Year
  Sex: Female

DRUGS (5)
  1. PREGABALIN [Suspect]
     Dosage: 75 MG, 2X/DAY
  2. PHENELZINE SULFATE [Suspect]
  3. CLONAZEPAM [Suspect]
     Dosage: 0.5 MG, 1X/DAY
  4. ACETAMINOPHEN AND CODEINE PHOSPHATE [Suspect]
     Dosage: 2 DF, 3X/DAY
     Route: 048
  5. ALCOHOL [Suspect]

REACTIONS (2)
  - ARRHYTHMIA [None]
  - OVERDOSE [None]
